FAERS Safety Report 12530307 (Version 1)
Quarter: 2016Q3

REPORT INFORMATION
  Report Type: Spontaneous
  Country: US (occurrence: None)
  Receive Date: 20160705
  Receipt Date: 20160705
  Transmission Date: 20161109
  Serious: No
  Sender: FDA-Public Use
  Company Number: None

PATIENT
  Age: 70 Year
  Sex: Male
  Weight: 102.97 kg

DRUGS (10)
  1. LISINOPRIL. [Concomitant]
     Active Substance: LISINOPRIL
  2. VITAMIN B12 [Concomitant]
     Active Substance: CYANOCOBALAMIN
  3. LUTEIN [Concomitant]
     Active Substance: LUTEIN
  4. TRAVATAN Z [Suspect]
     Active Substance: TRAVOPROST
     Indication: GLAUCOMA
     Route: 047
     Dates: start: 20160622, end: 20160623
  5. ZEAXANTHIN [Concomitant]
     Active Substance: ZEAXANTHIN
  6. VIT-E [Concomitant]
  7. CENTRUM CALCIUM / D-3 [Concomitant]
  8. ZINC [Concomitant]
     Active Substance: ZINC\ZINC CHLORIDE
  9. VIT-C [Concomitant]
  10. COENZYME Q10 [Concomitant]
     Active Substance: UBIDECARENONE

REACTIONS (4)
  - Eye irritation [None]
  - Mydriasis [None]
  - Conjunctivitis [None]
  - Photophobia [None]

NARRATIVE: CASE EVENT DATE: 20160623
